FAERS Safety Report 25660885 (Version 1)
Quarter: 2025Q3

REPORT INFORMATION
  Report Type: Spontaneous
  Country: JP (occurrence: JP)
  Receive Date: 20250808
  Receipt Date: 20250808
  Transmission Date: 20251020
  Serious: Yes (Death)
  Sender: SANOFI AVENTIS
  Company Number: JP-SA-2025SA233493

PATIENT
  Age: 44 Year
  Sex: Male

DRUGS (4)
  1. LEVOFLOXACIN [Suspect]
     Active Substance: LEVOFLOXACIN
     Indication: Tuberculosis of central nervous system
  2. LEVOFLOXACIN [Suspect]
     Active Substance: LEVOFLOXACIN
     Indication: Disseminated tuberculosis
  3. RIFADIN [Suspect]
     Active Substance: RIFAMPIN
     Indication: Tuberculosis of central nervous system
  4. RIFADIN [Suspect]
     Active Substance: RIFAMPIN
     Indication: Disseminated tuberculosis

REACTIONS (1)
  - Drug ineffective [Fatal]
